FAERS Safety Report 5486690-3 (Version None)
Quarter: 2007Q3

REPORT INFORMATION
  Report Type: 
  Country: None (occurrence: None)
  Receive Date: 20070924
  Receipt Date: 20061201
  Transmission Date: 20080115
  Serious: Yes (Other)
  Sender: FDA-Public Use
  Company Number: 2006136588

PATIENT
  Age: 30 Year
  Sex: Female

DRUGS (2)
  1. DILANTIN [Suspect]
     Indication: CONVULSION
  2. REBIF [Concomitant]

REACTIONS (1)
  - RASH PRURITIC [None]
